FAERS Safety Report 4594173-8 (Version None)
Quarter: 2005Q1

REPORT INFORMATION
  Report Type: 
  Country: None (occurrence: None)
  Receive Date: 20050222
  Receipt Date: 20050204
  Transmission Date: 20050727
  Serious: No
  Sender: FDA-Public Use
  Company Number: 2005PK00247

PATIENT
  Age: 43 Year
  Sex: Female
  Weight: 93 kg

DRUGS (4)
  1. SEROQUEL [Suspect]
     Indication: BIPOLAR DISORDER
     Dosage: 800 MG DAILY PO
     Route: 048
     Dates: start: 20041201
  2. SEROQUEL [Suspect]
     Indication: BIPOLAR DISORDER
     Dosage: 100 MG DAILY PO
     Route: 048
  3. VPS [Suspect]
     Indication: BIPOLAR DISORDER
     Dosage: 2000 MG DAILY PO
     Route: 048
     Dates: start: 20041201
  4. VPS [Suspect]
     Indication: BIPOLAR DISORDER
     Dosage: 1000 MG DAILY PO
     Route: 048

REACTIONS (7)
  - COORDINATION ABNORMAL [None]
  - DRUG INTERACTION [None]
  - DRUG TOXICITY [None]
  - DYSPNOEA [None]
  - NAUSEA [None]
  - VERTIGO [None]
  - VISUAL DISTURBANCE [None]
